FAERS Safety Report 7254169-4 (Version None)
Quarter: 2011Q1

REPORT INFORMATION
  Report Type: 
  Country: None (occurrence: None)
  Receive Date: 20110129
  Receipt Date: 20100126
  Transmission Date: 20110831
  Serious: No
  Sender: FDA-Public Use
  Company Number: US-ABBOTT-10P-163-0622210-00

PATIENT
  Sex: Female
  Weight: 56.75 kg

DRUGS (7)
  1. YASMIN [Concomitant]
     Indication: CONTRACEPTION
  2. HUMIRA [Suspect]
     Indication: RHEUMATOID ARTHRITIS
     Dosage: CHANGED FROM PEN TO PFS
     Dates: start: 20080901, end: 20091101
  3. CELEBREX [Concomitant]
     Indication: RHEUMATOID ARTHRITIS
     Dosage: DAILY
  4. HUMIRA [Suspect]
     Route: 058
     Dates: start: 20091101
  5. HUMIRA [Suspect]
     Route: 058
     Dates: start: 20070101, end: 20080901
  6. PLAQUENIL [Concomitant]
     Indication: RHEUMATOID ARTHRITIS
     Dosage: DAILY
  7. ALLEGRA [Concomitant]
     Indication: HYPERSENSITIVITY
     Dosage: DAILY

REACTIONS (9)
  - ARTHRALGIA [None]
  - PAIN [None]
  - INJECTION SITE PAIN [None]
  - WEIGHT INCREASED [None]
  - HYPERSOMNIA [None]
  - RHEUMATOID ARTHRITIS [None]
  - FATIGUE [None]
  - OROPHARYNGEAL PAIN [None]
  - PYREXIA [None]
